FAERS Safety Report 6275989-9 (Version None)
Quarter: 2009Q3

REPORT INFORMATION
  Report Type: 
  Country: None (occurrence: None)
  Receive Date: 20090720
  Receipt Date: 20090710
  Transmission Date: 20100115
  Serious: Yes (Other)
  Sender: FDA-Public Use
  Company Number: 09US002490

PATIENT
  Age: 72 Year
  Sex: Male
  Weight: 78.9 kg

DRUGS (1)
  1. MINOXIDIL [Suspect]
     Indication: ALOPECIA
     Dosage: 1 ML, QD, TOPICAL
     Route: 061
     Dates: start: 20081210

REACTIONS (1)
  - IRON DEFICIENCY ANAEMIA [None]
